FAERS Safety Report 8829283 (Version 2)
Quarter: 2012Q4

REPORT INFORMATION
  Report Type: 
  Country: PL (occurrence: PL)
  Receive Date: 20121008
  Receipt Date: 20121029
  Transmission Date: 20130627
  Serious: Yes (Death, Hospitalization)
  Sender: FDA-Public Use
  Company Number: PL-ELI_LILLY_AND_COMPANY-PL201210001977

PATIENT
  Sex: Female
  Weight: 82 kg

DRUGS (3)
  1. BYETTA [Suspect]
     Indication: TYPE 2 DIABETES MELLITUS
     Dosage: UNK UNK, unknown
     Dates: start: 201111
  2. BYETTA [Suspect]
     Dosage: 10 ug, unknown
     Dates: end: 201202
  3. METFORMIN [Concomitant]

REACTIONS (2)
  - Pancreatic carcinoma [Fatal]
  - Weight decreased [Unknown]
